FAERS Safety Report 8236984-3 (Version None)
Quarter: 2012Q1

REPORT INFORMATION
  Report Type: 
  Country: None (occurrence: None)
  Receive Date: 20120327
  Receipt Date: 20120320
  Transmission Date: 20120608
  Serious: Yes (Death)
  Sender: FDA-Public Use
  Company Number: PHEH2012US006445

PATIENT
  Age: 53 Year
  Sex: Male
  Weight: 150 kg

DRUGS (1)
  1. GLEEVEC [Suspect]
     Dosage: 100 MG, DAILY
     Route: 048
     Dates: start: 20120214

REACTIONS (1)
  - DEATH [None]
